FAERS Safety Report 4511610-5 (Version None)
Quarter: 2004Q4

REPORT INFORMATION
  Report Type: 
  Country: None (occurrence: None)
  Receive Date: 20041129
  Receipt Date: 20041015
  Transmission Date: 20050328
  Serious: Yes (Other)
  Sender: FDA-Public Use
  Company Number: US-BRISTOL-MYERS SQUIBB COMPANY-12733523

PATIENT
  Age: 20 Year
  Sex: Male

DRUGS (5)
  1. ABILIFY [Suspect]
     Indication: BIPOLAR DISORDER
     Dosage: STARTED ^ABOUT 6 WEEKS AGO^ AT 15 MG/DAY.
     Route: 048
  2. ZYPREXA [Concomitant]
     Dosage: BEING REDUCED DUE TO HIGH LIPID LEVELS
  3. WELLBUTRIN [Concomitant]
  4. LITHIUM [Concomitant]
  5. TRILEPTAL [Concomitant]

REACTIONS (3)
  - CONVULSION [None]
  - FACE INJURY [None]
  - INCOHERENT [None]
